FAERS Safety Report 11441492 (Version 1)
Quarter: 2015Q3

REPORT INFORMATION
  Report Type: Spontaneous
  Country: US (occurrence: US)
  Receive Date: 20150821
  Receipt Date: 20150821
  Transmission Date: 20151125
  Serious: No
  Sender: FDA-Public Use
  Company Number: US-ELI_LILLY_AND_COMPANY-US200702003560

PATIENT
  Age: 62 Year
  Sex: Male

DRUGS (9)
  1. LYRICA [Concomitant]
     Active Substance: PREGABALIN
     Dates: start: 200611, end: 200611
  2. NEURONTIN [Concomitant]
     Active Substance: GABAPENTIN
  3. BYETTA [Concomitant]
     Active Substance: EXENATIDE
     Indication: TYPE 2 DIABETES MELLITUS
     Dosage: 5 UG, 2/D
     Dates: start: 200508, end: 200509
  4. METFORMIN [Concomitant]
     Active Substance: METFORMIN HYDROCHLORIDE
  5. AMARYL [Concomitant]
     Active Substance: GLIMEPIRIDE
     Dates: start: 200508
  6. CYMBALTA [Suspect]
     Active Substance: DULOXETINE HYDROCHLORIDE
     Indication: DEPRESSION
     Dosage: 30 MG, 2/D
     Route: 048
  7. BYETTA [Concomitant]
     Active Substance: EXENATIDE
     Dosage: 10 UG, 2/D
     Route: 058
     Dates: start: 200509
  8. VICODIN [Concomitant]
     Active Substance: ACETAMINOPHEN\HYDROCODONE BITARTRATE
     Dates: start: 20061025, end: 200611
  9. MEDROL [Concomitant]
     Active Substance: METHYLPREDNISOLONE
     Indication: BACK PAIN

REACTIONS (5)
  - Fall [Unknown]
  - Infection [Recovered/Resolved]
  - Intervertebral disc protrusion [Unknown]
  - Back pain [Unknown]
  - Depression [Unknown]

NARRATIVE: CASE EVENT DATE: 200510
